FAERS Safety Report 18204284 (Version 1)
Quarter: 2020Q3

REPORT INFORMATION
  Report Type: Report from Study
  Country: None (occurrence: US)
  Receive Date: 20200828
  Receipt Date: 20200828
  Transmission Date: 20201103
  Serious: Yes (Other)
  Sender: FDA-Public Use
  Company Number: US-ABBVIE-20K-163-3526839-00

PATIENT
  Age: 58 Year
  Sex: Female

DRUGS (2)
  1. HUMIRA [Suspect]
     Active Substance: ADALIMUMAB
     Indication: COLITIS ULCERATIVE
  2. HUMIRA [Suspect]
     Active Substance: ADALIMUMAB
     Indication: RHEUMATOID ARTHRITIS
     Dosage: CITRATE FREE
     Route: 058
     Dates: end: 202007

REACTIONS (9)
  - Pulmonary contusion [Recovering/Resolving]
  - Blood creatinine abnormal [Unknown]
  - Rib fracture [Recovering/Resolving]
  - Systemic lupus erythematosus [Unknown]
  - Pain [Recovering/Resolving]
  - Osteoporosis [Unknown]
  - Fall [Recovering/Resolving]
  - Chest pain [Recovering/Resolving]
  - Contusion [Recovering/Resolving]

NARRATIVE: CASE EVENT DATE: 202007
